FAERS Safety Report 8087245-7 (Version None)
Quarter: 2012Q1

REPORT INFORMATION
  Report Type: 
  Country: None (occurrence: None)
  Receive Date: 20120128
  Receipt Date: 20110512
  Transmission Date: 20120608
  Serious: No
  Sender: FDA-Public Use
  Company Number: US-ABBOTT-11P-163-0725718-00

PATIENT
  Sex: Male
  Weight: 108.96 kg

DRUGS (4)
  1. HUMIRA [Suspect]
     Indication: CROHN'S DISEASE
     Route: 058
     Dates: start: 20100101
  2. REMERON [Concomitant]
     Indication: DEPRESSION
     Route: 048
  3. HUMIRA [Suspect]
     Indication: COLITIS ULCERATIVE
  4. HYDROXYZINE [Concomitant]
     Indication: PANIC ATTACK
     Dosage: ONCE EVERY 6 HOURS AS REQUIRED

REACTIONS (1)
  - INJECTION SITE HAEMORRHAGE [None]
